FAERS Safety Report 24963648 (Version 2)
Quarter: 2025Q1

REPORT INFORMATION
  Report Type: Spontaneous
  Country: DE (occurrence: DE)
  Receive Date: 20250213
  Receipt Date: 20250227
  Transmission Date: 20250409
  Serious: Yes (Other)
  Sender: TEVA
  Company Number: DE-TEVA-VS-3295568

PATIENT
  Age: 57 Year
  Sex: Male

DRUGS (5)
  1. PREDNISOLONE [Suspect]
     Active Substance: PREDNISOLONE
     Indication: Lichen myxoedematosus
     Route: 065
  2. INTRATECT [Suspect]
     Active Substance: HUMAN IMMUNOGLOBULIN G
     Indication: Lichen myxoedematosus
     Dosage: INFUSION, STRENGTH OF 100?G/L WITH DOSE OF 2?G/KG EVERY 4?WEEKS CYCLES, OVER 2 DAYS
     Route: 042
     Dates: start: 201302
  3. INTRATECT [Suspect]
     Active Substance: HUMAN IMMUNOGLOBULIN G
     Indication: Lichen myxoedematosus
     Dosage: INFUSION, 2?G/KG EVERY 3?WEEKS OVER 2?DAYS
     Route: 042
     Dates: start: 202003
  4. INTRATECT [Suspect]
     Active Substance: HUMAN IMMUNOGLOBULIN G
     Indication: Lichen myxoedematosus
     Route: 042
  5. YIMMUGO [Suspect]
     Active Substance: HUMAN IMMUNOGLOBULIN G-DIRA
     Indication: Lichen myxoedematosus
     Dosage: STRENGTH OF 100 G/L WITH DOSE 2?G/KG EVERY 3?WEEKS OVER 2 DAYS
     Route: 042

REACTIONS (8)
  - Drug ineffective [Unknown]
  - Malaise [Recovered/Resolved]
  - Chills [Recovered/Resolved]
  - Shunt thrombosis [Unknown]
  - Lethargy [Recovered/Resolved]
  - Pyrexia [Recovered/Resolved]
  - Fatigue [Recovered/Resolved]
  - Headache [Recovered/Resolved]

NARRATIVE: CASE EVENT DATE: 20231101
